FAERS Safety Report 7440249-7 (Version None)
Quarter: 2011Q2

REPORT INFORMATION
  Report Type: 
  Country: None (occurrence: None)
  Receive Date: 20110427
  Receipt Date: 20100628
  Transmission Date: 20111010
  Serious: No
  Sender: FDA-Public Use
  Company Number: US-PFIZER INC-2010080787

PATIENT
  Sex: Female
  Weight: 61 kg

DRUGS (5)
  1. ZITHROMAX [Suspect]
     Indication: SINUSITIS
     Dosage: 250 MG, 2X/DAY
     Route: 048
     Dates: start: 20100615, end: 20100601
  2. CLONAZEPAM [Concomitant]
     Indication: ANXIETY
     Dosage: 0.125 MG, DAILY
     Route: 048
  3. PAXIL [Concomitant]
     Indication: ANXIETY
  4. PAXIL [Concomitant]
     Indication: OBSESSIVE-COMPULSIVE DISORDER
     Dosage: 60 MG,DAILY
     Route: 048
  5. BENADRYL [Concomitant]
     Dosage: UNK

REACTIONS (6)
  - DIARRHOEA [None]
  - ABDOMINAL PAIN LOWER [None]
  - NAUSEA [None]
  - ANXIETY [None]
  - DRUG DOSE OMISSION [None]
  - HEADACHE [None]
